FAERS Safety Report 8072343-4 (Version None)
Quarter: 2011Q4

REPORT INFORMATION
  Report Type: 
  Country: None (occurrence: None)
  Receive Date: 20111222
  Receipt Date: 20111020
  Transmission Date: 20120403
  Serious: Yes (Hospitalization)
  Sender: FDA-Public Use
  Company Number: UTC-011508

PATIENT
  Age: 25 Year
  Sex: Female
  Weight: 61.81 kg

DRUGS (3)
  1. TYVASO [Suspect]
     Indication: COR PULMONALE CHRONIC
     Dosage: 18-54 MICROGRAMS (4 IN 1 D),INHALATION
     Route: 055
     Dates: start: 20110707
  2. TYVASO [Suspect]
  3. ADCIRCA [Concomitant]

REACTIONS (3)
  - VOMITING [None]
  - NAUSEA [None]
  - FEELING ABNORMAL [None]
